FAERS Safety Report 8445608-1 (Version None)
Quarter: 2012Q2

REPORT INFORMATION
  Report Type: 
  Country: None (occurrence: None)
  Receive Date: 20120618
  Receipt Date: 20120611
  Transmission Date: 20120825
  Serious: No
  Sender: FDA-Public Use
  Company Number: US-PFIZER INC-2012141408

PATIENT
  Sex: Female

DRUGS (3)
  1. GLIPIZIDE [Suspect]
     Indication: TYPE 2 DIABETES MELLITUS
     Dosage: UNK
  2. LANTUS [Suspect]
     Dosage: 30 UNIT(S) DAILY
     Route: 058
  3. LANTUS [Suspect]
     Indication: TYPE 2 DIABETES MELLITUS
     Dosage: 28 UNIT(S) DAILY
     Route: 058

REACTIONS (1)
  - BLOOD GLUCOSE DECREASED [None]
